FAERS Safety Report 7146388-2 (Version None)
Quarter: 2010Q4

REPORT INFORMATION
  Report Type: 
  Country: None (occurrence: None)
  Receive Date: 20101208
  Receipt Date: 20100408
  Transmission Date: 20110411
  Serious: No
  Sender: FDA-Public Use
  Company Number: US-BRISTOL-MYERS SQUIBB COMPANY-15049588

PATIENT
  Age: 68 Year
  Sex: Female

DRUGS (2)
  1. PRAVACHOL [Suspect]
     Dates: start: 20100201
  2. MULTAQ [Suspect]
     Indication: ATRIAL FIBRILLATION
     Route: 048
     Dates: start: 20090901

REACTIONS (2)
  - HEPATIC ENZYME INCREASED [None]
  - JOINT SWELLING [None]
